FAERS Safety Report 11146357 (Version 1)
Quarter: 2015Q2

REPORT INFORMATION
  Report Type: Report from Study
  Country: ES (occurrence: ES)
  Receive Date: 20150528
  Receipt Date: 20150528
  Transmission Date: 20150821
  Serious: Yes (Hospitalization)
  Sender: FDA-Public Use
  Company Number: ES-ASTRAZENECA-2008AC01185

PATIENT
  Age: 74 Year
  Sex: Male

DRUGS (7)
  1. DILUTOL [Concomitant]
     Route: 048
  2. TERBASMIN [Concomitant]
     Active Substance: TERBUTALINE SULFATE
     Dosage: 250 UG/DOSE, 400 DOSE 10 ML MG TABLETS
  3. SEROQUEL [Suspect]
     Active Substance: QUETIAPINE FUMARATE
     Indication: CONDUCT DISORDER
     Route: 048
     Dates: start: 200801, end: 20080312
  4. AMLODIPINO BESILATO [Concomitant]
     Indication: HYPERTENSION
     Route: 048
  5. SEROQUEL [Suspect]
     Active Substance: QUETIAPINE FUMARATE
     Indication: BEHAVIOURAL AND PSYCHIATRIC SYMPTOMS OF DEMENTIA
     Route: 048
     Dates: start: 200801, end: 20080312
  6. REQUIP [Suspect]
     Active Substance: ROPINIROLE HYDROCHLORIDE
     Indication: PARKINSON^S DISEASE
     Route: 048
     Dates: start: 200802, end: 20080312
  7. SINEMET PLUS [Concomitant]
     Active Substance: CARBIDOPA\LEVODOPA
     Indication: PARKINSON^S DISEASE
     Dosage: 25/100MG 1.5 TABLETS TID
     Route: 048

REACTIONS (4)
  - Dyskinesia [Recovered/Resolved]
  - Blood creatine phosphokinase increased [Recovered/Resolved]
  - Pyrexia [Recovered/Resolved]
  - Neuroleptic malignant syndrome [Recovered/Resolved]

NARRATIVE: CASE EVENT DATE: 20080312
